FAERS Safety Report 7179022-6 (Version None)
Quarter: 2010Q4

REPORT INFORMATION
  Report Type: 
  Country: None (occurrence: None)
  Receive Date: 20101221
  Receipt Date: 20101210
  Transmission Date: 20110411
  Serious: Yes (Hospitalization)
  Sender: FDA-Public Use
  Company Number: KR-JNJFOC-20101106316

PATIENT
  Sex: Female
  Weight: 43.2 kg

DRUGS (3)
  1. PALIPERIDONE PALMITATE [Suspect]
     Indication: SCHIZOPHRENIA
     Route: 030
  2. GEWORIN [Suspect]
     Indication: PRODUCT USED FOR UNKNOWN INDICATION
  3. ZIPRASIDONE HCL [Concomitant]
     Indication: SCHIZOPHRENIA
     Route: 048

REACTIONS (2)
  - SCHIZOPHRENIA [None]
  - SUICIDE ATTEMPT [None]
